FAERS Safety Report 24224632 (Version 2)
Quarter: 2024Q4

REPORT INFORMATION
  Report Type: Spontaneous
  Country: US (occurrence: US)
  Receive Date: 20240819
  Receipt Date: 20241001
  Transmission Date: 20250114
  Serious: No
  Sender: ALKERMES
  Company Number: US-ALKERMES INC.-ALK-2024-002051

PATIENT
  Age: 28 Year
  Sex: Male

DRUGS (1)
  1. ARISTADA [Suspect]
     Active Substance: ARIPIPRAZOLE LAUROXIL
     Indication: Product used for unknown indication
     Dosage: 882 MILLIGRAM
     Route: 030

REACTIONS (4)
  - Incorrect dose administered [Recovered/Resolved]
  - Needle issue [Recovered/Resolved]
  - Off label use [Unknown]
  - Wrong technique in product usage process [Recovered/Resolved]

NARRATIVE: CASE EVENT DATE: 20240724
